FAERS Safety Report 15689824 (Version 5)
Quarter: 2019Q2

REPORT INFORMATION
  Report Type: Report from Study
  Country: GB (occurrence: GB)
  Receive Date: 20181205
  Receipt Date: 20190516
  Transmission Date: 20190711
  Serious: Yes (Other)
  Sender: FDA-Public Use
  Company Number: GB-ASPEN-GLO2018GB011462

PATIENT
  Age: 81 Year
  Sex: Male

DRUGS (4)
  1. DEXAMETHASONE. [Suspect]
     Active Substance: DEXAMETHASONE
     Indication: PLASMA CELL MYELOMA
     Dosage: UNK
     Route: 065
  2. NINLARO [Suspect]
     Active Substance: IXAZOMIB CITRATE
     Dosage: 4 MG
     Route: 048
  3. LENALIDOMIDE [Suspect]
     Active Substance: LENALIDOMIDE
     Indication: PLASMA CELL MYELOMA
     Dosage: UNK
     Route: 065
  4. NINLARO [Suspect]
     Active Substance: IXAZOMIB CITRATE
     Indication: PLASMA CELL MYELOMA
     Dosage: 4 MG
     Route: 048
     Dates: start: 20181120, end: 20190405

REACTIONS (14)
  - Productive cough [Unknown]
  - Mouth ulceration [Unknown]
  - Diarrhoea [Recovered/Resolved]
  - Lethargy [Unknown]
  - Dyspnoea [Unknown]
  - Dry skin [Unknown]
  - Lower respiratory tract infection [Not Recovered/Not Resolved]
  - Anaemia [Unknown]
  - Localised infection [Unknown]
  - Oral pain [Unknown]
  - Glossodynia [Unknown]
  - Skin ulcer [Unknown]
  - Epistaxis [Unknown]
  - Chills [Unknown]
